FAERS Safety Report 9272408 (Version 1)
Quarter: 2013Q2

REPORT INFORMATION
  Report Type: Spontaneous
  Country: FR (occurrence: FR)
  Receive Date: 20130506
  Receipt Date: 20130506
  Transmission Date: 20140414
  Serious: Yes (Hospitalization)
  Sender: FDA-Public Use
  Company Number: FR-PFIZER INC-2013137849

PATIENT
  Age: 82 Year
  Sex: Female

DRUGS (4)
  1. LYRICA [Suspect]
     Indication: NEURALGIA
     Dosage: 75 MG
     Route: 048
     Dates: start: 201302, end: 20130313
  2. FOSFOMYCIN [Concomitant]
     Dosage: UNK
  3. CEFOTAXIME MYLAN [Concomitant]
     Dosage: UNK
  4. FLAGYL ^AVENTIS^ [Concomitant]
     Dosage: UNK

REACTIONS (1)
  - Neutropenia [Recovering/Resolving]
